FAERS Safety Report 9440585 (Version 3)
Quarter: 2013Q3

REPORT INFORMATION
  Report Type: Report from Study
  Country: DE (occurrence: DE)
  Receive Date: 20130805
  Receipt Date: 20130830
  Transmission Date: 20140515
  Serious: Yes (Hospitalization)
  Sender: FDA-Public Use
  Company Number: DE-TEVA-421448GER

PATIENT
  Sex: Female

DRUGS (16)
  1. DOXORUBICIN [Suspect]
     Indication: B-CELL LYMPHOMA
     Dosage: 5X TWICE IN 30 DAYS
     Route: 042
     Dates: start: 20130513, end: 2013
  2. DOXORUBICIN [Suspect]
     Route: 042
     Dates: start: 20130805, end: 201308
  3. PREDNISONE [Suspect]
     Indication: B-CELL LYMPHOMA
     Dosage: 100 MILLIGRAM DAILY;
     Route: 048
     Dates: start: 20130513, end: 201305
  4. PREDNISONE [Suspect]
     Dosage: 100 MILLIGRAM DAILY; DATE OF LAST DOSE PRIOR TO EVENT: 02/JUL/2013
     Route: 048
     Dates: start: 20130528
  5. VINCRISTINE [Suspect]
     Indication: B-CELL LYMPHOMA
     Dosage: 1 MILLIGRAM DAILY; 3X IN 30 DAYS
     Route: 042
     Dates: start: 20130513, end: 20130702
  6. VINCRISTINE [Suspect]
     Dosage: 2X FOR 16 DAYS
     Route: 042
     Dates: start: 2013, end: 2013
  7. RITUXIMAB [Suspect]
     Indication: B-CELL LYMPHOMA
     Dosage: 8X
     Route: 042
     Dates: start: 20130508
  8. CYCLOPHOSPHAMID [Suspect]
     Indication: B-CELL LYMPHOMA
     Dosage: 5X TWICE IN 30 DAYS
     Route: 042
     Dates: start: 20130513, end: 2013
  9. CYCLOPHOSPHAMID [Suspect]
     Route: 042
     Dates: start: 20130805, end: 201308
  10. PEGFILGRASTIM [Suspect]
     Indication: B-CELL LYMPHOMA
     Route: 058
     Dates: start: 20130513, end: 2013
  11. PEGFILGRASTIM [Suspect]
     Route: 058
     Dates: start: 20130808, end: 201308
  12. ACICLOVIR [Concomitant]
     Indication: PROPHYLAXIS
     Dosage: 1600 MILLIGRAM DAILY;
     Dates: start: 20130508
  13. AMPHOTERICIN B [Concomitant]
     Dosage: 400 MILLIGRAM DAILY;
     Dates: start: 20130508
  14. LEVOFLOXACIN [Concomitant]
     Dosage: 500 MILLIGRAM DAILY;
     Route: 048
     Dates: start: 20130508
  15. FUROSEMIDE [Concomitant]
     Dosage: 80 MILLIGRAM DAILY;
     Route: 048
     Dates: start: 20130508
  16. SULFAMETHOXAZOLE/TRIMETHOPRIM [Concomitant]
     Indication: PROPHYLAXIS
     Dosage: 1920 MILLIGRAM DAILY;
     Dates: start: 20130508

REACTIONS (7)
  - Atrial fibrillation [Recovered/Resolved]
  - Tachyarrhythmia [Not Recovered/Not Resolved]
  - Anaemia [Recovered/Resolved]
  - Chronic obstructive pulmonary disease [Unknown]
  - Dyspnoea [Not Recovered/Not Resolved]
  - Polyneuropathy [Unknown]
  - Febrile neutropenia [Recovered/Resolved]
